FAERS Safety Report 9713742 (Version 1)
Quarter: 2013Q4

REPORT INFORMATION
  Report Type: Spontaneous
  Country: US (occurrence: None)
  Receive Date: 20131122
  Receipt Date: 20131122
  Transmission Date: 20140711
  Serious: Yes (Hospitalization, Other)
  Sender: FDA-Public Use
  Company Number: 2013/208

PATIENT
  Age: 76 Year
  Sex: Female

DRUGS (1)
  1. VENLAFAXIN [Suspect]
     Indication: CATAPLEXY

REACTIONS (6)
  - Hypertension [None]
  - Gastroenteritis [None]
  - Vomiting [None]
  - Hallucination [None]
  - Drug ineffective [None]
  - Cataplexy [None]
